FAERS Safety Report 9787994 (Version 1)
Quarter: 2013Q4

REPORT INFORMATION
  Report Type: Spontaneous
  Country: US (occurrence: None)
  Receive Date: 20131227
  Receipt Date: 20131227
  Transmission Date: 20140711
  Serious: Yes (Other)
  Sender: FDA-Public Use
  Company Number: None

PATIENT
  Age: 67 Year
  Sex: Female
  Weight: 131.09 kg

DRUGS (1)
  1. FUROSEMIDE [Suspect]
     Indication: CORONARY ARTERY BYPASS
     Dosage: 1  ONCE DAILY  TAKEN BY MOUTH
     Route: 048
     Dates: start: 20131216, end: 20131224

REACTIONS (6)
  - Product substitution issue [None]
  - Product quality issue [None]
  - Drug ineffective [None]
  - Swelling [None]
  - Palpitations [None]
  - Urine output decreased [None]
